FAERS Safety Report 18690686 (Version 5)
Quarter: 2021Q3

REPORT INFORMATION
  Report Type: Other
  Country: JP (occurrence: JP)
  Receive Date: 20210101
  Receipt Date: 20210902
  Transmission Date: 20211014
  Serious: Yes (Hospitalization)
  Sender: FDA-Public Use
  Company Number: JP-ROCHE-2740658

PATIENT
  Age: 59 Year
  Sex: Female

DRUGS (3)
  1. PREDNISOLONE. [Concomitant]
     Active Substance: PREDNISOLONE
     Indication: NEUROMYELITIS OPTICA SPECTRUM DISORDER
     Dosage: 13MILLIGRAM/DAY
     Route: 048
     Dates: start: 20200325, end: 20210525
  2. AZATHIOPRINE. [Concomitant]
     Active Substance: AZATHIOPRINE
     Indication: NEUROMYELITIS OPTICA SPECTRUM DISORDER
     Dosage: UNK
     Route: 065
     Dates: start: 20190131, end: 20210525
  3. SATRALIZUMAB. [Suspect]
     Active Substance: SATRALIZUMAB
     Indication: NEUROMYELITIS OPTICA SPECTRUM DISORDER
     Route: 058
     Dates: start: 20201125, end: 20201125

REACTIONS (2)
  - Portal vein thrombosis [Recovered/Resolved]
  - Ascites [Recovered/Resolved]

NARRATIVE: CASE EVENT DATE: 20201129
